FAERS Safety Report 6615929-3 (Version None)
Quarter: 2010Q1

REPORT INFORMATION
  Report Type: 
  Country: None (occurrence: None)
  Receive Date: 20100305
  Receipt Date: 20100223
  Transmission Date: 20100710
  Serious: Yes (Other)
  Sender: FDA-Public Use
  Company Number: GXKR2010DK02120

PATIENT
  Sex: Male

DRUGS (1)
  1. METHOTREXATE [Suspect]
     Indication: RHEUMATOID ARTHRITIS
     Route: 048
     Dates: start: 20070131

REACTIONS (2)
  - SKIN CANCER [None]
  - SURGERY [None]
